FAERS Safety Report 22170737 (Version 1)
Quarter: 2023Q2

REPORT INFORMATION
  Report Type: Spontaneous
  Country: BR (occurrence: BR)
  Receive Date: 20230404
  Receipt Date: 20230404
  Transmission Date: 20230721
  Serious: Yes (Other)
  Sender: FDA-Public Use
  Company Number: BR-002147023-NVSC2023BR059233

PATIENT
  Age: 59 Year
  Sex: Female
  Weight: 1.57 kg

DRUGS (7)
  1. KISQALI [Suspect]
     Active Substance: RIBOCICLIB
     Indication: Breast cancer metastatic
     Dosage: 600 MG, QD FOR 21 DAYS EVERY 28 DAYS
     Route: 048
     Dates: start: 20221011, end: 20230208
  2. KISQALI [Suspect]
     Active Substance: RIBOCICLIB
     Indication: Rhesus antigen positive
     Dosage: UNK
     Route: 065
  3. KISQALI [Suspect]
     Active Substance: RIBOCICLIB
     Indication: Palliative care
     Dosage: UNK
     Route: 065
  4. KISQALI [Suspect]
     Active Substance: RIBOCICLIB
     Dosage: 400 MG, QD
     Route: 065
  5. FULVESTRANT [Concomitant]
     Active Substance: FULVESTRANT
     Indication: Breast cancer metastatic
     Dosage: 500 MG EVERY 28 DAYS (FILLED SYRINGE)
     Route: 030
     Dates: start: 202210
  6. FULVESTRANT [Concomitant]
     Active Substance: FULVESTRANT
     Indication: Rhesus antigen positive
  7. FULVESTRANT [Concomitant]
     Active Substance: FULVESTRANT
     Indication: Palliative care

REACTIONS (2)
  - Skin toxicity [Recovering/Resolving]
  - Palmar-plantar erythrodysaesthesia syndrome [Recovering/Resolving]

NARRATIVE: CASE EVENT DATE: 20230101
